FAERS Safety Report 9562353 (Version 2)
Quarter: 2013Q3

REPORT INFORMATION
  Report Type: Spontaneous
  Country: IT (occurrence: IT)
  Receive Date: 20130927
  Receipt Date: 20130927
  Transmission Date: 20140515
  Serious: Yes (Life-Threatening, Other)
  Sender: FDA-Public Use
  Company Number: IT-TAKEDA-TIF2013A00123

PATIENT
  Sex: 0

DRUGS (11)
  1. COMPETACT [Suspect]
     Indication: TYPE 2 DIABETES MELLITUS
     Route: 048
     Dates: start: 20060101, end: 20130717
  2. SELEPARINA [Concomitant]
  3. LASIX [Concomitant]
     Route: 048
  4. KARVEA [Concomitant]
  5. PERIDON [Concomitant]
  6. TOTALIP [Concomitant]
  7. DEPONIT [Concomitant]
  8. MEPRAL [Concomitant]
  9. TENORMIN [Concomitant]
  10. TACHIDOL [Concomitant]
  11. CONTRAMAL [Concomitant]

REACTIONS (3)
  - Hypoglycaemia [Recovered/Resolved with Sequelae]
  - Lactic acidosis [Recovered/Resolved with Sequelae]
  - Renal failure acute [Recovered/Resolved with Sequelae]
